FAERS Safety Report 16662866 (Version 1)
Quarter: 2019Q3

REPORT INFORMATION
  Report Type: Spontaneous
  Country: CA (occurrence: CA)
  Receive Date: 20190802
  Receipt Date: 20190802
  Transmission Date: 20191004
  Serious: Yes (Disabling)
  Sender: FDA-Public Use
  Company Number: CA-TEVA-2019-CA-1084689

PATIENT
  Age: 18 Year
  Sex: Male
  Weight: 65 kg

DRUGS (7)
  1. TEVA-CHLORPROMAZINE [Suspect]
     Active Substance: CHLORPROMAZINE
     Indication: IMPULSIVE BEHAVIOUR
     Route: 048
  2. TEVA-CHLORPROMAZINE [Suspect]
     Active Substance: CHLORPROMAZINE
     Indication: AGGRESSION
  3. DEXILANT [Concomitant]
     Active Substance: DEXLANSOPRAZOLE
  4. QUETIAPINE. [Concomitant]
     Active Substance: QUETIAPINE
  5. CELEXA [Concomitant]
     Active Substance: CITALOPRAM HYDROBROMIDE
  6. TEVA-CHLORPROMAZINE [Suspect]
     Active Substance: CHLORPROMAZINE
     Indication: BEHAVIOUR DISORDER
     Route: 048
  7. COGENTIN [Concomitant]
     Active Substance: BENZTROPINE MESYLATE

REACTIONS (6)
  - Corneal deposits [Not Recovered/Not Resolved]
  - Cataract [Not Recovered/Not Resolved]
  - Toxicity to various agents [Not Recovered/Not Resolved]
  - Ocular toxicity [Not Recovered/Not Resolved]
  - Visual impairment [Not Recovered/Not Resolved]
  - Lenticular opacities [Not Recovered/Not Resolved]
